FAERS Safety Report 13896495 (Version 1)
Quarter: 2017Q3

REPORT INFORMATION
  Report Type: Spontaneous
  Country: US (occurrence: US)
  Receive Date: 20170823
  Receipt Date: 20170823
  Transmission Date: 20171127
  Serious: No
  Sender: FDA-Public Use
  Company Number: US-MISSION PHARMACAL COMPANY-2024976

PATIENT
  Age: 38 Year
  Sex: Female

DRUGS (1)
  1. THIOLA [Suspect]
     Active Substance: TIOPRONIN
     Indication: CYSTINURIA
     Route: 065
     Dates: start: 20140918, end: 20170630

REACTIONS (6)
  - Vomiting [Unknown]
  - Chills [Unknown]
  - Pain [Unknown]
  - Pyrexia [Unknown]
  - Lymphadenopathy [Not Recovered/Not Resolved]
  - Nausea [Unknown]
